FAERS Safety Report 14046187 (Version 1)
Quarter: 2017Q4

REPORT INFORMATION
  Report Type: Spontaneous
  Country: KZ (occurrence: KZ)
  Receive Date: 20171005
  Receipt Date: 20171005
  Transmission Date: 20180321
  Serious: Yes (Death)
  Sender: FDA-Public Use
  Company Number: KZ-ACTELION-A-CH2017-160182

PATIENT
  Age: 7 Year
  Sex: Female

DRUGS (1)
  1. ZAVESCA [Suspect]
     Active Substance: MIGLUSTAT
     Indication: NIEMANN-PICK DISEASE
     Dosage: 100 MG, BID
     Route: 048
     Dates: start: 20170525, end: 20170628

REACTIONS (6)
  - Epistaxis [Unknown]
  - Dysphagia [Unknown]
  - Diarrhoea [Unknown]
  - Niemann-Pick disease [Fatal]
  - Epilepsy [Fatal]
  - Fatigue [Fatal]
